FAERS Safety Report 14948649 (Version 1)
Quarter: 2018Q2

REPORT INFORMATION
  Report Type: Spontaneous
  Country: GB (occurrence: GB)
  Receive Date: 20180529
  Receipt Date: 20180529
  Transmission Date: 20180711
  Serious: Yes (Other)
  Sender: FDA-Public Use
  Company Number: GB-PFIZER INC-2018212150

PATIENT
  Age: 56 Year
  Sex: Female
  Weight: 68 kg

DRUGS (6)
  1. ATORVASTATIN CALCIUM. [Suspect]
     Active Substance: ATORVASTATIN CALCIUM
     Dosage: UNK
     Dates: start: 20180108
  2. FUSIDIC ACID [Concomitant]
     Active Substance: FUSIDIC ACID
     Dosage: 3 DF
     Route: 061
     Dates: start: 20180308, end: 20180315
  3. FULTIUM D3 [Concomitant]
     Active Substance: CHOLECALCIFEROL
     Dosage: 1 DF, 1X/DAY
     Dates: start: 20171006
  4. SERTRALINE [Concomitant]
     Active Substance: SERTRALINE HYDROCHLORIDE
     Dosage: 1 DF, 1X/DAY
     Dates: start: 20171006
  5. ESTRIOL [Concomitant]
     Active Substance: ESTRIOL
     Dosage: APPLY AT NIGHT
     Dates: start: 20171006
  6. LEVOTHYROXINE. [Concomitant]
     Active Substance: LEVOTHYROXINE
     Dosage: 3 DF, WEEKLY
     Dates: start: 20171006

REACTIONS (2)
  - Lip blister [Recovered/Resolved]
  - Oral mucosal blistering [Recovered/Resolved]

NARRATIVE: CASE EVENT DATE: 20180411
